FAERS Safety Report 9542185 (Version 2)
Quarter: 2013Q4

REPORT INFORMATION
  Report Type: Spontaneous
  Country: GB (occurrence: None)
  Receive Date: 20130918
  Receipt Date: 20131002
  Transmission Date: 20140711
  Serious: Yes (Disabling)
  Sender: FDA-Public Use
  Company Number: AUR-APL-2013-07546

PATIENT
  Age: 72 Year
  Sex: Female
  Weight: 56.5 kg

DRUGS (4)
  1. SIMVASTATIN [Suspect]
     Indication: HYPERLIPIDAEMIA
     Route: 048
     Dates: start: 20070316, end: 20130822
  2. CO-DYDRAMOL (PARAMOL-118) [Concomitant]
  3. FOLIC ACID (FOLIC ACID) [Concomitant]
  4. MEBEVERINE (MEBEVERINE) [Concomitant]

REACTIONS (2)
  - Abnormal loss of weight [None]
  - Liver function test abnormal [None]
